FAERS Safety Report 7918191-4 (Version None)
Quarter: 2011Q4

REPORT INFORMATION
  Report Type: 
  Country: None (occurrence: None)
  Receive Date: 20111116
  Receipt Date: 20111104
  Transmission Date: 20120403
  Serious: Yes (Hospitalization)
  Sender: FDA-Public Use
  Company Number: US-GLAXOSMITHKLINE-A0725141A

PATIENT
  Age: 67 Year
  Sex: Male
  Weight: 159.1 kg

DRUGS (1)
  1. AVANDIA [Suspect]
     Indication: TYPE 2 DIABETES MELLITUS
     Dosage: 8MG PER DAY
     Route: 065
     Dates: start: 20010220, end: 20071205

REACTIONS (2)
  - CARDIAC FAILURE CONGESTIVE [None]
  - HEART INJURY [None]
